FAERS Safety Report 22678475 (Version 2)
Quarter: 2024Q4

REPORT INFORMATION
  Report Type: Spontaneous
  Country: US (occurrence: US)
  Receive Date: 20230706
  Receipt Date: 20241112
  Transmission Date: 20250115
  Serious: Yes (Death)
  Sender: PFIZER
  Company Number: US-PFIZER INC-PV202300116818

PATIENT
  Age: 73 Year
  Sex: Female

DRUGS (2)
  1. IBRANCE [Suspect]
     Active Substance: PALBOCICLIB
     Dosage: 125 MG
  2. IBRANCE [Suspect]
     Active Substance: PALBOCICLIB
     Dosage: 75 MG TABLET, 1 DAILY DAYS 1-21 OF A 28 DAY CYCLE

REACTIONS (2)
  - Death [Fatal]
  - Malaise [Unknown]
